FAERS Safety Report 9074976 (Version 1)
Quarter: 2013Q1

REPORT INFORMATION
  Report Type: Spontaneous
  Country: US (occurrence: US)
  Receive Date: 20130128
  Receipt Date: 20130128
  Transmission Date: 20140127
  Serious: No
  Sender: FDA-Public Use
  Company Number: US-GLAXOSMITHKLINE-A0959815A

PATIENT
  Age: 36 Year
  Sex: Male

DRUGS (2)
  1. MEPRON [Suspect]
     Indication: BABESIOSIS
     Route: 048
     Dates: start: 20110610, end: 20110701
  2. Z PAK [Suspect]

REACTIONS (4)
  - Fatigue [Not Recovered/Not Resolved]
  - Muscular weakness [Unknown]
  - Myalgia [Unknown]
  - Musculoskeletal stiffness [Unknown]
